FAERS Safety Report 7243789-9 (Version None)
Quarter: 2011Q1

REPORT INFORMATION
  Report Type: 
  Country: None (occurrence: None)
  Receive Date: 20110119
  Receipt Date: 20110119
  Transmission Date: 20110831
  Serious: Yes (Other)
  Sender: FDA-Public Use
  Company Number: None

PATIENT
  Sex: Female
  Weight: 79.3795 kg

DRUGS (2)
  1. ABILIFY [Suspect]
     Indication: BIPOLAR DISORDER
     Dates: start: 20100315, end: 20100407
  2. ABILIFY [Suspect]
     Indication: DEPRESSION
     Dates: start: 20100315, end: 20100407

REACTIONS (3)
  - SUICIDAL IDEATION [None]
  - INSOMNIA [None]
  - FATIGUE [None]
